FAERS Safety Report 13552257 (Version 3)
Quarter: 2017Q4

REPORT INFORMATION
  Report Type: Report from Study
  Country: CA (occurrence: CA)
  Receive Date: 20170516
  Receipt Date: 20171023
  Transmission Date: 20180320
  Serious: Yes (Hospitalization, Other)
  Sender: FDA-Public Use
  Company Number: CA-BRISTOL-MYERS SQUIBB COMPANY-BMS-2017-041655

PATIENT
  Age: 13 Year
  Sex: Female

DRUGS (1)
  1. ABATACEPT [Suspect]
     Active Substance: ABATACEPT
     Indication: JUVENILE IDIOPATHIC ARTHRITIS
     Dosage: 500 MG, Q4WK
     Route: 042
     Dates: start: 20150702

REACTIONS (9)
  - Cortisol decreased [Recovering/Resolving]
  - Shock [Unknown]
  - Diarrhoea [Recovering/Resolving]
  - Nasopharyngitis [Not Recovered/Not Resolved]
  - Fatigue [Unknown]
  - Sinusitis [Recovering/Resolving]
  - Rheumatoid arthritis [Unknown]
  - Vomiting [Recovering/Resolving]
  - Influenza [Recovering/Resolving]

NARRATIVE: CASE EVENT DATE: 20170410
